FAERS Safety Report 10210796 (Version 1)
Quarter: 2014Q2

REPORT INFORMATION
  Report Type: Spontaneous
  Country: US (occurrence: US)
  Receive Date: 20140602
  Receipt Date: 20140602
  Transmission Date: 20141212
  Serious: Yes (Other)
  Sender: FDA-Public Use
  Company Number: US-BAYER-2014-080843

PATIENT
  Age: 27 Year
  Sex: Female

DRUGS (1)
  1. MIRENA [Suspect]
     Indication: CONTRACEPTION
     Dosage: UNK
     Dates: start: 20130419

REACTIONS (11)
  - Convulsion [Recovering/Resolving]
  - Respiratory arrest [None]
  - Cyanosis [None]
  - Amnesia [None]
  - Mood altered [None]
  - Mood swings [None]
  - Balance disorder [None]
  - Memory impairment [None]
  - Disorientation [None]
  - Feeling drunk [None]
  - Nervousness [None]
